FAERS Safety Report 5936138-7 (Version None)
Quarter: 2008Q4

REPORT INFORMATION
  Report Type: 
  Country: None (occurrence: None)
  Receive Date: 20081030
  Receipt Date: 20081021
  Transmission Date: 20090506
  Serious: Yes (Hospitalization)
  Sender: FDA-Public Use
  Company Number: ES-AMGEN-UK310464

PATIENT
  Age: 81 Year
  Sex: Female

DRUGS (14)
  1. ARANESP [Suspect]
     Indication: ANAEMIA
     Route: 065
     Dates: start: 20061129, end: 20070207
  2. ARANESP [Suspect]
     Route: 065
     Dates: start: 20070207, end: 20080130
  3. ARANESP [Suspect]
     Route: 065
     Dates: start: 20080130, end: 20080423
  4. ARANESP [Suspect]
     Route: 065
     Dates: start: 20080423, end: 20080726
  5. ARANESP [Suspect]
     Route: 065
     Dates: start: 20081001
  6. ACENOCOUMAROL [Concomitant]
  7. PAROXETINE HCL [Concomitant]
  8. DIGOXINE [Concomitant]
  9. DILTIAZEM HCL [Concomitant]
  10. TRIMETAZIDINE [Concomitant]
  11. OMEPRAZOLE [Concomitant]
  12. FOLIC ACID [Concomitant]
  13. VITAMIN B-12 [Concomitant]
  14. ISOSORBIDE MONONITRATE [Concomitant]
     Route: 065

REACTIONS (8)
  - ARRHYTHMIA [None]
  - BLOOD PRESSURE INCREASED [None]
  - CEREBROVASCULAR ACCIDENT [None]
  - DIZZINESS [None]
  - HYPERHIDROSIS [None]
  - LOSS OF CONSCIOUSNESS [None]
  - TACHYCARDIA [None]
  - VOMITING [None]
